FAERS Safety Report 7020438-6 (Version None)
Quarter: 2010Q3

REPORT INFORMATION
  Report Type: 
  Country: None (occurrence: None)
  Receive Date: 20100927
  Receipt Date: 20100915
  Transmission Date: 20110219
  Serious: Yes (Life-Threatening, Disabling)
  Sender: FDA-Public Use
  Company Number: 2010MA002718

PATIENT
  Age: 54 Year
  Sex: Male

DRUGS (3)
  1. SULFATRIM [Suspect]
     Indication: URINARY TRACT INFECTION
     Dates: start: 20100601, end: 20100902
  2. CIPROFLOXACIN [Concomitant]
  3. TAMSULOSIN [Concomitant]

REACTIONS (5)
  - DYSPNOEA [None]
  - EYE SWELLING [None]
  - HYPERTENSION [None]
  - LUNG INFILTRATION [None]
  - RASH MACULO-PAPULAR [None]
